FAERS Safety Report 5363385-8 (Version None)
Quarter: 2007Q2

REPORT INFORMATION
  Report Type: 
  Country: None (occurrence: None)
  Receive Date: 20070620
  Receipt Date: 20070618
  Transmission Date: 20071010
  Serious: Yes (Other)
  Sender: FDA-Public Use
  Company Number: US-BRISTOL-MYERS SQUIBB COMPANY-13817580

PATIENT
  Age: 66 Year
  Sex: Male

DRUGS (2)
  1. PACLITAXEL [Suspect]
     Indication: ANGIOSARCOMA
  2. RADIATION THERAPY [Suspect]
     Indication: ANGIOSARCOMA

REACTIONS (6)
  - CORNEAL STAINING [None]
  - DACRYOSTENOSIS ACQUIRED [None]
  - ECTROPION [None]
  - INTRAOCULAR PRESSURE INCREASED [None]
  - LACRIMATION INCREASED [None]
  - PUNCTATE KERATITIS [None]
